FAERS Safety Report 20654825 (Version 1)
Quarter: 2022Q1

REPORT INFORMATION
  Report Type: Spontaneous
  Country: US (occurrence: None)
  Receive Date: 20220330
  Receipt Date: 20220330
  Transmission Date: 20220423
  Serious: Yes (Other)
  Sender: FDA-Public Use
  Company Number: None

PATIENT
  Age: 33 Year
  Sex: Female
  Weight: 56.7 kg

DRUGS (11)
  1. ALVESCO [Suspect]
     Active Substance: CICLESONIDE
     Indication: Pneumonitis
     Dosage: OTHER QUANTITY : 2 PUFF(S);?
     Route: 055
     Dates: start: 20220321, end: 20220327
  2. ALVESCO [Suspect]
     Active Substance: CICLESONIDE
     Indication: COVID-19
  3. Propranolol 10mg BID [Concomitant]
  4. SPRINTEC [Concomitant]
     Active Substance: ETHINYL ESTRADIOL\NORGESTIMATE
  5. One a day multivitamin QD [Concomitant]
  6. Protandim QD [Concomitant]
  7. Omega 3 QD [Concomitant]
  8. CoQ10 100 mg [Concomitant]
  9. VITAMIN B12 [Concomitant]
     Active Substance: CYANOCOBALAMIN
  10. Vitamin D 2,000IU QD [Concomitant]
  11. Extended release magnesium 250 mg QD [Concomitant]

REACTIONS (3)
  - Back pain [None]
  - Gait disturbance [None]
  - Movement disorder [None]

NARRATIVE: CASE EVENT DATE: 20220323
